FAERS Safety Report 9689850 (Version 1)
Quarter: 2013Q4

REPORT INFORMATION
  Report Type: Spontaneous
  Country: US (occurrence: US)
  Receive Date: 20131115
  Receipt Date: 20131115
  Transmission Date: 20140711
  Serious: Yes (Other)
  Sender: FDA-Public Use
  Company Number: US-JNJFOC-20131104785

PATIENT
  Sex: 0

DRUGS (2)
  1. VISINE UNSPECIFIED [Suspect]
     Route: 050
  2. VISINE UNSPECIFIED [Suspect]
     Indication: PRODUCT USED FOR UNKNOWN INDICATION
     Route: 050

REACTIONS (3)
  - Malaise [Unknown]
  - Toxicity to various agents [Unknown]
  - Organ failure [Unknown]
